FAERS Safety Report 7005628-0 (Version None)
Quarter: 2010Q3

REPORT INFORMATION
  Report Type: 
  Country: None (occurrence: None)
  Receive Date: 20100921
  Receipt Date: 20100916
  Transmission Date: 20110219
  Serious: Yes (Congenital Anomaly, Other)
  Sender: FDA-Public Use
  Company Number: A0882134A

PATIENT
  Sex: Male
  Weight: 4.3 kg

DRUGS (2)
  1. LAMICTAL [Suspect]
     Dosage: 100MG PER DAY
  2. ANTIBIOTICS [Concomitant]
     Indication: VULVOVAGINITIS

REACTIONS (2)
  - CRYPTORCHISM [None]
  - DRUG EXPOSURE DURING PREGNANCY [None]
